FAERS Safety Report 5754197-1 (Version None)
Quarter: 2008Q2

REPORT INFORMATION
  Report Type: 
  Country: None (occurrence: None)
  Receive Date: 20080527
  Receipt Date: 20080520
  Transmission Date: 20081010
  Serious: Yes (Death, Hospitalization)
  Sender: FDA-Public Use
  Company Number: WAES 0805AUS00087

PATIENT
  Age: 65 Year
  Sex: Male

DRUGS (4)
  1. SENTRESS         (RALTEGRAVIR POTASSIUM) [Suspect]
     Indication: HIV INFECTION
     Dosage: 400 MG/BID PO
     Route: 048
     Dates: start: 20070528, end: 20071221
  2. TRUVADA (EMTRICITABINE (+) TENOFOVIR DISOPROXIL [Suspect]
     Indication: HIV INFECTION
     Dosage: 1 TAB/2XW PO
     Route: 048
     Dates: start: 20051019
  3. DARUNAVIR [Suspect]
     Indication: HIV INFECTION
     Dosage: 600 MG/BID PO
     Route: 048
     Dates: start: 20070601, end: 20071221
  4. RITONAVIR [Suspect]
     Indication: HIV INFECTION
     Dosage: 100 MG/BID PO
     Route: 048
     Dates: start: 20051019, end: 20071221

REACTIONS (19)
  - ACUTE CORONARY SYNDROME [None]
  - ACUTE PULMONARY OEDEMA [None]
  - ANAEMIA [None]
  - BLOOD POTASSIUM DECREASED [None]
  - CARDIAC FAILURE [None]
  - DIVERTICULUM [None]
  - GASTROINTESTINAL HAEMORRHAGE [None]
  - GENERAL PHYSICAL HEALTH DETERIORATION [None]
  - HAEMODIALYSIS [None]
  - HEART RATE INCREASED [None]
  - HYPOTENSION [None]
  - INSOMNIA [None]
  - LOWER RESPIRATORY TRACT INFECTION [None]
  - METABOLIC ACIDOSIS [None]
  - OESOPHAGEAL CANDIDIASIS [None]
  - PAIN [None]
  - PLEURAL EFFUSION [None]
  - PULMONARY HYPERTENSION [None]
  - RESPIRATORY DISTRESS [None]
